FAERS Safety Report 9288110 (Version 1)
Quarter: 2013Q2

REPORT INFORMATION
  Report Type: Spontaneous
  Country: AT (occurrence: None)
  Receive Date: 20130510
  Receipt Date: 20130510
  Transmission Date: 20140414
  Serious: Yes (Death, Hospitalization)
  Sender: FDA-Public Use
  Company Number: SYM-2013-03422

PATIENT
  Sex: Male

DRUGS (6)
  1. 5-FLUOROURACIL [Suspect]
     Indication: SQUAMOUS CELL CARCINOMA OF HEAD AND NECK
  2. CISPLATIN [Suspect]
     Dosage: 75 MG/M2, EVERY THREE WEEKS
  3. DOCETAXEL [Suspect]
     Dosage: 75 MG/M2, EVERY THREE WEEKS
  4. DEXAMETHASONE (DEXAMEHTASONE) (DEXAMEHTASONE) [Concomitant]
  5. QUINOLONE ANTIBACTERIALS (QUINOLONE ANTIBACTERIALS) [Concomitant]
  6. PEGFILGRASTIM [Concomitant]

REACTIONS (5)
  - Febrile neutropenia [None]
  - Haemodynamic instability [None]
  - Systemic inflammatory response syndrome [None]
  - Renal failure [None]
  - Respiratory failure [None]
